FAERS Safety Report 21959022 (Version 1)
Quarter: 2023Q1

REPORT INFORMATION
  Report Type: Spontaneous
  Country: AU (occurrence: AU)
  Receive Date: 20230206
  Receipt Date: 20230206
  Transmission Date: 20230418
  Serious: Yes (Death, Other)
  Sender: FDA-Public Use
  Company Number: AU-BAXTER-2023BAX011867

PATIENT

DRUGS (18)
  1. OLIMEL E [Suspect]
     Active Substance: AMINO ACIDS\DEXTROSE\ELECTROLYTES NOS\SOYBEAN OIL
     Indication: Parenteral nutrition
     Route: 065
  2. WATER FOR INJECTION [Suspect]
     Active Substance: WATER
     Indication: Parenteral nutrition
     Route: 065
  3. CERNEVIT [Suspect]
     Active Substance: VITAMINS
     Indication: Parenteral nutrition
     Route: 065
  4. UNSPECIFIED INGREDIENT [Suspect]
     Active Substance: UNSPECIFIED INGREDIENT
     Indication: Parenteral nutrition
     Dosage: AT AN UNSPECIFIED DOSE AND FREQUENCY, ADULT TRACE ELEMENTS
     Route: 065
  5. CALCIUM GLUCONATE [Suspect]
     Active Substance: CALCIUM GLUCONATE
     Indication: Parenteral nutrition
     Route: 065
  6. SODIUM ASCORBATE [Suspect]
     Active Substance: SODIUM ASCORBATE
     Indication: Parenteral nutrition
     Dosage: AT AN UNSPECIFIED DOSE AND FREQUENCY, 15 G/50 ML VACUUM
     Route: 065
  7. VITAMIN K [Suspect]
     Active Substance: PHYTONADIONE
     Indication: Parenteral nutrition
     Dosage: AT AN UNSPECIFIED DOSE AND FREQUENCY, (KONAKION)
     Route: 065
  8. CLINISOL [Suspect]
     Active Substance: ALANINE\ARGININE\ASPARTIC ACID\GLUTAMIC ACID\GLYCINE\HISTIDINE\ISOLEUCINE\LEUCINE\LYSINE\METHIONINE\
     Indication: Parenteral nutrition
     Dosage: AT AN UNSPECIFIED DOSE AND FREQUENCY, AMINO ACID (AS CLINISOL)
     Route: 065
  9. DEXTROSE [Suspect]
     Active Substance: DEXTROSE
     Indication: Parenteral nutrition
     Route: 065
  10. OLIVE OIL\SOYBEAN OIL [Suspect]
     Active Substance: OLIVE OIL\SOYBEAN OIL
     Indication: Parenteral nutrition
     Dosage: AT AN UNSPECIFIED DOSE AND FREQUENCY, LIPID (AS CLINOLEIC)
     Route: 065
  11. NITROGEN [Suspect]
     Active Substance: NITROGEN
     Indication: Parenteral nutrition
     Route: 065
  12. SODIUM [Suspect]
     Active Substance: SODIUM
     Indication: Parenteral nutrition
     Route: 065
  13. POTASSIUM [Suspect]
     Active Substance: POTASSIUM
     Indication: Parenteral nutrition
     Route: 065
  14. MAGNESIUM [Suspect]
     Active Substance: MAGNESIUM
     Indication: Parenteral nutrition
     Route: 065
  15. CALCIUM [Suspect]
     Active Substance: CALCIUM
     Indication: Parenteral nutrition
     Route: 065
  16. CHLORIDE ION [Suspect]
     Active Substance: CHLORIDE ION
     Indication: Parenteral nutrition
     Route: 065
  17. UNSPECIFIED INGREDIENT [Suspect]
     Active Substance: UNSPECIFIED INGREDIENT
     Indication: Parenteral nutrition
     Dosage: AT AN UNSPECIFIED DOSE AND FREQUENCY, EXCLUDING LIPID
     Route: 065
  18. TAUROLIDINE [Suspect]
     Active Substance: TAUROLIDINE
     Route: 065

REACTIONS (1)
  - Death [Fatal]

NARRATIVE: CASE EVENT DATE: 20230101
